FAERS Safety Report 18051886 (Version 1)
Quarter: 2020Q3

REPORT INFORMATION
  Report Type: Spontaneous
  Country: BR (occurrence: BR)
  Receive Date: 20200722
  Receipt Date: 20200722
  Transmission Date: 20201103
  Serious: Yes (Other)
  Sender: FDA-Public Use
  Company Number: BR-SUN PHARMACEUTICAL INDUSTRIES LTD-2020R1-253963

PATIENT
  Age: 7 Year
  Sex: Male

DRUGS (4)
  1. EPINASTINE. [Suspect]
     Active Substance: EPINASTINE HYDROCHLORIDE
     Indication: VERNAL KERATOCONJUNCTIVITIS
     Dosage: UNK, 1DOSE/12HOUR
  2. OLOPATADINE. [Suspect]
     Active Substance: OLOPATADINE
     Indication: VERNAL KERATOCONJUNCTIVITIS
     Dosage: UNK
     Route: 065
  3. PREDNISOLONE. [Suspect]
     Active Substance: PREDNISOLONE
     Indication: VERNAL KERATOCONJUNCTIVITIS
     Dosage: UNK, 1DOSE/12HOUR
  4. DEXAMETHASONE. [Suspect]
     Active Substance: DEXAMETHASONE
     Indication: VERNAL KERATOCONJUNCTIVITIS
     Dosage: UNK
     Route: 065

REACTIONS (1)
  - Drug ineffective [Unknown]
